FAERS Safety Report 7241582-4 (Version None)
Quarter: 2011Q1

REPORT INFORMATION
  Report Type: 
  Country: None (occurrence: None)
  Receive Date: 20110124
  Receipt Date: 20110112
  Transmission Date: 20110831
  Serious: Yes (Death, Other)
  Sender: FDA-Public Use
  Company Number: GB-MERCK-1101GBR00045

PATIENT
  Age: 81 Year
  Sex: Male
  Weight: 70 kg

DRUGS (6)
  1. CLOPIDOGREL BISULFATE [Concomitant]
     Route: 065
  2. ZOCOR [Suspect]
     Indication: MYOCARDIAL ISCHAEMIA
     Route: 048
  3. CLARITHROMYCIN [Concomitant]
     Route: 065
  4. OMEPRAZOLE [Concomitant]
     Route: 065
  5. ZOCOR [Suspect]
     Route: 048
  6. BISOPROLOL FUMARATE [Concomitant]
     Route: 065

REACTIONS (5)
  - BRONCHOPNEUMONIA [None]
  - RENAL FAILURE ACUTE [None]
  - MALAISE [None]
  - MYALGIA [None]
  - RHABDOMYOLYSIS [None]
